FAERS Safety Report 21365330 (Version 3)
Quarter: 2024Q1

REPORT INFORMATION
  Report Type: Spontaneous
  Country: US (occurrence: US)
  Receive Date: 20220922
  Receipt Date: 20240212
  Transmission Date: 20240410
  Serious: No
  Sender: FDA-Public Use
  Company Number: US-PFIZER INC-202201178626

PATIENT
  Age: 62 Year
  Sex: Female
  Weight: 88.889 kg

DRUGS (2)
  1. NARDIL [Suspect]
     Active Substance: PHENELZINE SULFATE
     Indication: Depression
     Dosage: 22.5 MG, 2X/DAY, (15 MILLIGRAM, ONE AND A HALF TWICE A DAY WHICH WAS THE DOSE I WAS ORIGINALLY ON)
     Dates: start: 2014
  2. NARDIL [Suspect]
     Active Substance: PHENELZINE SULFATE
     Dosage: 15 MG, 2X/DAY

REACTIONS (3)
  - Peripheral swelling [Recovered/Resolved]
  - Paraesthesia [Recovered/Resolved]
  - Hypertension [Recovered/Resolved]

NARRATIVE: CASE EVENT DATE: 20220101
